FAERS Safety Report 17144548 (Version 1)
Quarter: 2019Q4

REPORT INFORMATION
  Report Type: Spontaneous
  Country: CN (occurrence: CN)
  Receive Date: 20191212
  Receipt Date: 20191212
  Transmission Date: 20200122
  Serious: Yes (Other)
  Sender: FDA-Public Use
  Company Number: CN-SA-2019SA339501

PATIENT
  Age: 71 Year
  Sex: Male
  Weight: 51 kg

DRUGS (3)
  1. TEGAFUR,GIMERACIL AND OTERACIL POTASSIUM [Suspect]
     Active Substance: GIMERACIL\OTERACIL\TEGAFUR
     Dosage: 60 MG, QD
     Route: 048
     Dates: start: 20191027, end: 20191109
  2. TEGAFUR,GIMERACIL AND OTERACIL POTASSIUM [Suspect]
     Active Substance: GIMERACIL\OTERACIL\TEGAFUR
     Indication: RECTAL CANCER
     Dosage: 40 MG, QD
     Route: 048
     Dates: start: 20191027, end: 20191109
  3. ELOXATIN [Suspect]
     Active Substance: OXALIPLATIN
     Indication: RECTAL CANCER
     Dosage: 150 MG, QD
     Route: 041
     Dates: start: 20191027, end: 20191027

REACTIONS (1)
  - Granulocytopenia [Recovering/Resolving]

NARRATIVE: CASE EVENT DATE: 20191119
